FAERS Safety Report 24799647 (Version 1)
Quarter: 2025Q1

REPORT INFORMATION
  Report Type: Report from Study
  Country: CA (occurrence: CA)
  Receive Date: 20250102
  Receipt Date: 20250102
  Transmission Date: 20250408
  Serious: Yes (Hospitalization, Other)
  Sender: ABBVIE
  Company Number: CA-ABBVIE-6064972

PATIENT
  Age: 56 Year
  Sex: Male

DRUGS (1)
  1. RINVOQ [Suspect]
     Active Substance: UPADACITINIB
     Indication: Dermatitis atopic
     Route: 048
     Dates: start: 20230627, end: 20240921

REACTIONS (39)
  - Hospitalisation [Recovered/Resolved]
  - Surgery [Recovered/Resolved]
  - Debridement [Unknown]
  - Ileostomy [Unknown]
  - Endotracheal intubation [Unknown]
  - Ureteric obstruction [Unknown]
  - Tracheostomy [Unknown]
  - Intestinal mass [Unknown]
  - Asthenia [Recovered/Resolved]
  - Neuralgia [Recovered/Resolved]
  - Myopathy [Recovered/Resolved]
  - Gout [Unknown]
  - Systemic inflammatory response syndrome [Recovered/Resolved]
  - Abdominal tenderness [Unknown]
  - Pancreatitis acute [Recovered/Resolved]
  - Blood lactic acid increased [Unknown]
  - Hypoxia [Recovered/Resolved]
  - Eczema [Recovered/Resolved]
  - Pancreatitis necrotising [Unknown]
  - Laparotomy [Unknown]
  - Blood pressure measurement [Unknown]
  - Pain [Unknown]
  - Intensive care unit acquired weakness [Unknown]
  - Gastrooesophageal reflux disease [Unknown]
  - Nausea [Recovered/Resolved]
  - Cold sweat [Recovered/Resolved]
  - Discomfort [Unknown]
  - Moaning [Unknown]
  - Pallor [Unknown]
  - Back pain [Recovered/Resolved]
  - Large intestinal obstruction [Recovered/Resolved]
  - Abdominal pain [Recovered/Resolved]
  - Peritonitis [Unknown]
  - Dry skin [Unknown]
  - Skin warm [Unknown]
  - Necrosis [Unknown]
  - Ascites [Unknown]
  - Hypoxia [Unknown]
  - Flatulence [Unknown]

NARRATIVE: CASE EVENT DATE: 20240101
